FAERS Safety Report 8156699-X (Version None)
Quarter: 2012Q1

REPORT INFORMATION
  Report Type: 
  Country: None (occurrence: None)
  Receive Date: 20120222
  Receipt Date: 20120214
  Transmission Date: 20120608
  Serious: Yes (Other)
  Sender: FDA-Public Use
  Company Number: BR-BAYER-2012-014920

PATIENT
  Age: 91 Year
  Sex: Female
  Weight: 46 kg

DRUGS (2)
  1. PRADAXA [Concomitant]
     Indication: CEREBRAL ISCHAEMIA
     Dosage: 2 DF, QD
     Route: 048
  2. AVELOX [Suspect]
     Indication: INFLUENZA
     Dosage: 1 DF, QD
     Route: 048
     Dates: start: 20120212

REACTIONS (5)
  - NIGHTMARE [None]
  - INSOMNIA [None]
  - DELUSIONAL PERCEPTION [None]
  - PSYCHOMOTOR HYPERACTIVITY [None]
  - DELIRIUM [None]
